FAERS Safety Report 6418309-9 (Version None)
Quarter: 2009Q4

REPORT INFORMATION
  Report Type: 
  Country: None (occurrence: None)
  Receive Date: 20091023
  Receipt Date: 20090803
  Transmission Date: 20100525
  Serious: Yes (Other)
  Sender: FDA-Public Use
  Company Number: 2009UF0170

PATIENT
  Age: 5 Year
  Sex: Female

DRUGS (1)
  1. ULESFIA [Suspect]
     Indication: LICE INFESTATION
     Dosage: 1 WEEKLY TIMES 2
     Dates: start: 20090723, end: 20090730

REACTIONS (1)
  - DRUG INEFFECTIVE [None]
